FAERS Safety Report 7932076-9 (Version None)
Quarter: 2011Q4

REPORT INFORMATION
  Report Type: 
  Country: None (occurrence: None)
  Receive Date: 20111121
  Receipt Date: 20111031
  Transmission Date: 20120403
  Serious: Yes (Hospitalization)
  Sender: FDA-Public Use
  Company Number: US-ACTELION-A-US2011-56347

PATIENT

DRUGS (2)
  1. TRACLEER [Suspect]
     Indication: PULMONARY ARTERIAL HYPERTENSION
     Dosage: UNK
     Route: 048
     Dates: start: 20110901
  2. ADCIRCA [Concomitant]

REACTIONS (3)
  - HEART VALVE REPLACEMENT [None]
  - CARDIAC PACEMAKER INSERTION [None]
  - CARDIAC OPERATION [None]
